FAERS Safety Report 20986725 (Version 2)
Quarter: 2022Q3

REPORT INFORMATION
  Report Type: Report from Study
  Country: US (occurrence: US)
  Receive Date: 20220621
  Receipt Date: 20220822
  Transmission Date: 20221027
  Serious: Yes (Hospitalization, Other)
  Sender: FDA-Public Use
  Company Number: US-JNJFOC-20210922498

PATIENT
  Age: 72 Year
  Sex: Female

DRUGS (1)
  1. MACITENTAN [Suspect]
     Active Substance: MACITENTAN
     Indication: Pulmonary arterial hypertension
     Route: 048
     Dates: start: 202106

REACTIONS (10)
  - Pulmonary oedema [Recovered/Resolved]
  - Fluid retention [Recovered/Resolved]
  - Haemodialysis [Not Recovered/Not Resolved]
  - Weight increased [Recovered/Resolved]
  - Epistaxis [Not Recovered/Not Resolved]
  - Sinusitis [Recovered/Resolved]
  - Intervertebral disc protrusion [Not Recovered/Not Resolved]
  - Parosmia [Unknown]
  - Weight decreased [Recovered/Resolved]
  - Fatigue [Not Recovered/Not Resolved]

NARRATIVE: CASE EVENT DATE: 20210810
